FAERS Safety Report 4960252-6 (Version None)
Quarter: 2006Q1

REPORT INFORMATION
  Report Type: 
  Country: None (occurrence: None)
  Receive Date: 20060328
  Receipt Date: 20060320
  Transmission Date: 20060701
  Serious: Yes (Hospitalization)
  Sender: FDA-Public Use
  Company Number: 2006039909

PATIENT
  Sex: 0

DRUGS (1)
  1. CELEBREX [Suspect]
     Indication: ILL-DEFINED DISORDER
     Dates: start: 20020101

REACTIONS (3)
  - CEREBROVASCULAR ACCIDENT [None]
  - HEART INJURY [None]
  - ISCHAEMIA [None]
